FAERS Safety Report 12535854 (Version 2)
Quarter: 2016Q3

REPORT INFORMATION
  Report Type: Spontaneous
  Country: US (occurrence: US)
  Receive Date: 20160707
  Receipt Date: 20160707
  Transmission Date: 20161109
  Serious: No
  Sender: FDA-Public Use
  Company Number: US-CIPLA LTD.-2016US03125

PATIENT

DRUGS (4)
  1. AMLODIPINE [Suspect]
     Active Substance: AMLODIPINE BESYLATE
     Indication: HYPERTENSION
     Dosage: 2.5 MG, QD
     Route: 048
     Dates: start: 20160317
  2. SYNTHROID [Concomitant]
     Active Substance: LEVOTHYROXINE SODIUM
     Dosage: 0.75 MG, UNK
     Route: 065
  3. VALIUM [Concomitant]
     Active Substance: DIAZEPAM
     Indication: SPONDYLITIS
     Dosage: 2.5 MG, AS NEEDED
     Route: 065
  4. ZENAX [Concomitant]
     Indication: ANXIETY
     Dosage: 0.25 MG, ONCE IN 3 MOTHS
     Route: 065

REACTIONS (4)
  - Pollakiuria [Unknown]
  - Hyponatraemia [Unknown]
  - Drug intolerance [Unknown]
  - Nasal congestion [Unknown]

NARRATIVE: CASE EVENT DATE: 20160319
